FAERS Safety Report 6414248-8 (Version None)
Quarter: 2009Q4

REPORT INFORMATION
  Report Type: 
  Country: None (occurrence: None)
  Receive Date: 20091026
  Receipt Date: 20091015
  Transmission Date: 20100525
  Serious: Yes (Hospitalization, Other)
  Sender: FDA-Public Use
  Company Number: US-JNJFOC-20091005568

PATIENT
  Sex: Male
  Weight: 50 kg

DRUGS (5)
  1. REMICADE [Suspect]
     Route: 042
     Dates: start: 20090610, end: 20090928
  2. REMICADE [Suspect]
     Indication: CROHN'S DISEASE
     Route: 042
     Dates: start: 20090610, end: 20090928
  3. VITAMIN [Concomitant]
  4. PHENAZOPYRIDINE HCL TAB [Concomitant]
  5. MESALAZINE [Concomitant]

REACTIONS (1)
  - CROHN'S DISEASE [None]
